FAERS Safety Report 6041624-8 (Version None)
Quarter: 2009Q1

REPORT INFORMATION
  Report Type: 
  Country: None (occurrence: None)
  Receive Date: 20090116
  Receipt Date: 20090116
  Transmission Date: 20090719
  Serious: Yes (Hospitalization)
  Sender: FDA-Public Use
  Company Number: Z0000645A

PATIENT
  Age: 64 Year
  Sex: Female
  Weight: 87.1 kg

DRUGS (2)
  1. TOPOTECAN [Suspect]
     Dosage: 4.5MG CYCLIC
     Route: 048
     Dates: start: 20081218
  2. BEVACIZUMAB [Suspect]
     Dosage: 1300MG CYCLIC
     Route: 042
     Dates: start: 20081218

REACTIONS (1)
  - DIARRHOEA [None]
